FAERS Safety Report 21321892 (Version 1)
Quarter: 2022Q3

REPORT INFORMATION
  Report Type: Spontaneous
  Country: US (occurrence: US)
  Receive Date: 20220912
  Receipt Date: 20220912
  Transmission Date: 20221026
  Serious: No
  Sender: FDA-Public Use
  Company Number: US-ALLERGAN-2205820US

PATIENT
  Sex: Male
  Weight: 101.15 kg

DRUGS (3)
  1. ANDRODERM [Suspect]
     Active Substance: TESTOSTERONE
     Indication: Hypogonadism
     Dosage: UNK, 2 PATCHES
     Route: 062
     Dates: start: 2016
  2. ANDRODERM [Suspect]
     Active Substance: TESTOSTERONE
     Dosage: 5 PATCHES A DAY
     Dates: start: 2009
  3. ANDROGEL [Concomitant]
     Active Substance: TESTOSTERONE

REACTIONS (4)
  - Incorrect dose administered [Unknown]
  - Wrong technique in product usage process [Unknown]
  - Product adhesion issue [Unknown]
  - Device leakage [Unknown]
